FAERS Safety Report 7328542-X (Version None)
Quarter: 2011Q1

REPORT INFORMATION
  Report Type: 
  Country: None (occurrence: None)
  Receive Date: 20110224
  Receipt Date: 20110224
  Transmission Date: 20110831
  Serious: Yes (Other)
  Sender: FDA-Public Use
  Company Number: None

PATIENT
  Age: 55 Year
  Sex: Male
  Weight: 99.7913 kg

DRUGS (1)
  1. TRIAD LUBRICATING JELLY [Suspect]
     Indication: CAUDA EQUINA SYNDROME
     Dosage: 5 GRAMS 5TIMES A DAY URETHRAL
     Route: 066
     Dates: start: 20080201, end: 20110211

REACTIONS (2)
  - CYSTITIS [None]
  - PRODUCT QUALITY ISSUE [None]
